FAERS Safety Report 15990321 (Version 1)
Quarter: 2019Q1

REPORT INFORMATION
  Report Type: Spontaneous
  Country: US (occurrence: US)
  Receive Date: 20190221
  Receipt Date: 20190221
  Transmission Date: 20190418
  Serious: Yes (Death)
  Sender: FDA-Public Use
  Company Number: None

PATIENT
  Sex: Female

DRUGS (1)
  1. MEGESTROL ACETATE 40MG/ML OR SUSP [Suspect]
     Active Substance: MEGESTROL ACETATE

REACTIONS (1)
  - Death [None]
